FAERS Safety Report 8403533-6 (Version None)
Quarter: 2012Q2

REPORT INFORMATION
  Report Type: 
  Country: None (occurrence: None)
  Receive Date: 20120601
  Receipt Date: 20120523
  Transmission Date: 20120825
  Serious: Yes (Hospitalization)
  Sender: FDA-Public Use
  Company Number: US-B.I. PHARMACEUTICALS,INC./RIDGEFIELD-2008-BP-14277BP

PATIENT
  Sex: Female
  Weight: 70.31 kg

DRUGS (11)
  1. CYCLOBENZAPRINE [Concomitant]
     Dosage: 30 MG
     Dates: start: 20060110
  2. BUPROPION HYDROCHLORIDE [Concomitant]
     Dosage: 300 MG
     Dates: start: 20060301
  3. ZOLOFT [Concomitant]
     Dosage: 75 MG
     Dates: start: 20060121
  4. MIRAPEX [Suspect]
     Indication: RESTLESS LEGS SYNDROME
  5. MIRAPEX [Suspect]
     Indication: INSOMNIA
  6. MIRAPEX [Suspect]
     Indication: MALAISE
  7. PLAQUENIL [Concomitant]
     Indication: SYSTEMIC LUPUS ERYTHEMATOSUS
  8. MIRAPEX [Suspect]
     Indication: FIBROMYALGIA
     Dosage: SEE NARRATIVE
     Route: 048
     Dates: start: 20051031, end: 20080930
  9. MIRAPEX [Suspect]
     Indication: SYSTEMIC LUPUS ERYTHEMATOSUS
  10. ADVAIR DISKUS 100/50 [Concomitant]
     Indication: ASTHMA
  11. VELIVET PILPAK [Concomitant]
     Dosage: 1 ANZ
     Dates: start: 20060118

REACTIONS (21)
  - FATIGUE [None]
  - HYPOMANIA [None]
  - WEIGHT DECREASED [None]
  - MANIA [None]
  - ACUTE STRESS DISORDER [None]
  - TOOTH INFECTION [None]
  - EMOTIONAL DISTRESS [None]
  - INSOMNIA [None]
  - OBSESSIVE-COMPULSIVE DISORDER [None]
  - PERSONALITY CHANGE [None]
  - SUICIDAL IDEATION [None]
  - LOCALISED INFECTION [None]
  - ANXIETY [None]
  - BIPOLAR I DISORDER [None]
  - DENTAL CARIES [None]
  - CONFUSIONAL STATE [None]
  - DELUSION OF GRANDEUR [None]
  - PAIN [None]
  - CONVULSION [None]
  - COMPULSIVE SHOPPING [None]
  - DEPRESSION [None]
